FAERS Safety Report 5059375-5 (Version None)
Quarter: 2006Q3

REPORT INFORMATION
  Report Type: 
  Country: None (occurrence: None)
  Receive Date: 20060718
  Receipt Date: 20060706
  Transmission Date: 20061208
  Serious: Yes (Hospitalization, Disabling)
  Sender: FDA-Public Use
  Company Number: 2006BI004601

PATIENT
  Age: 63 Year
  Sex: Female

DRUGS (10)
  1. ZEVALIN [Suspect]
     Indication: BONE MARROW CONDITIONING REGIMEN
     Dosage: 0.4 MCI/KG;1X;IV
     Route: 042
     Dates: start: 20051201, end: 20051201
  2. RITUXIMIB [Concomitant]
  3. CARMUSTINE [Concomitant]
  4. ETOPOSIDE [Concomitant]
  5. ARACYTINE [Concomitant]
  6. MELPHALAN [Concomitant]
  7. METHYLPREDNISOLONE [Concomitant]
  8. MEROPENEM [Concomitant]
  9. ACYCLOVIR [Concomitant]
  10. LEDERVORIN [Concomitant]

REACTIONS (5)
  - LUNG DISORDER [None]
  - MYOPATHY STEROID [None]
  - POLYNEUROPATHY [None]
  - QUADRIPARESIS [None]
  - STEM CELL TRANSPLANT [None]
